FAERS Safety Report 9179931 (Version 1)
Quarter: 2013Q1

REPORT INFORMATION
  Report Type: Other
  Country: GB (occurrence: GB)
  Receive Date: 20130321
  Receipt Date: 20130321
  Transmission Date: 20140127
  Serious: Yes (Other)
  Sender: FDA-Public Use
  Company Number: GB-WATSON-2013-04817

PATIENT
  Age: 56 Year
  Sex: Female

DRUGS (6)
  1. DIAZEPAM (WATSON LABORATORIES) [Suspect]
     Indication: PRODUCT USED FOR UNKNOWN INDICATION
     Dosage: 2 DF, DAILY
     Route: 065
  2. TRIFLUOPERAZINE [Suspect]
     Indication: PSYCHOTIC DISORDER
     Dosage: 2.5 ML, DAILY
     Route: 048
  3. TRIFLUOPERAZINE [Suspect]
     Dosage: 5 ML, DAILY
     Route: 048
  4. TRANYLCYPROMINE [Concomitant]
     Indication: PSYCHOTIC DISORDER
     Dosage: 2.5 DF, DAILY
     Route: 065
  5. PROPRANOLOL [Concomitant]
     Indication: PRODUCT USED FOR UNKNOWN INDICATION
     Dosage: 40 MG, BID
     Route: 065
  6. SIMVASTATIN [Concomitant]
     Indication: PRODUCT USED FOR UNKNOWN INDICATION
     Dosage: 1 DF, DAILY
     Route: 065

REACTIONS (4)
  - Anxiety [Recovered/Resolved]
  - Restlessness [Recovered/Resolved]
  - Dizziness [Recovered/Resolved]
  - Feeling abnormal [Recovered/Resolved]
